FAERS Safety Report 4820039-1 (Version None)
Quarter: 2005Q4

REPORT INFORMATION
  Report Type: 
  Country: None (occurrence: None)
  Receive Date: 20051013
  Receipt Date: 20050718
  Transmission Date: 20060501
  Serious: No
  Sender: FDA-Public Use
  Company Number: WAES 0504USA03876

PATIENT
  Sex: Female

DRUGS (7)
  1. EMEND [Suspect]
     Indication: PROPHYLAXIS OF NAUSEA AND VOMITING
     Dosage: SEE IMAGE
     Route: 048
     Dates: start: 20050511, end: 20050511
  2. EMEND [Suspect]
     Indication: PROPHYLAXIS OF NAUSEA AND VOMITING
     Dosage: SEE IMAGE
     Route: 048
     Dates: start: 20050512, end: 20050513
  3. IFEX [Suspect]
     Indication: CHEMOTHERAPY
  4. NOVANTRONE [Concomitant]
  5. RITUXAN [Concomitant]
  6. ETOPOSIDE [Concomitant]
  7. MESNA [Concomitant]

REACTIONS (3)
  - CONFUSIONAL STATE [None]
  - DIZZINESS [None]
  - HALLUCINATION [None]
